FAERS Safety Report 6679258-4 (Version None)
Quarter: 2010Q2

REPORT INFORMATION
  Report Type: 
  Country: None (occurrence: None)
  Receive Date: 20100408
  Receipt Date: 20090722
  Transmission Date: 20101027
  Serious: No
  Sender: FDA-Public Use
  Company Number: 2009-00458

PATIENT
  Age: 48 Year
  Sex: Male
  Weight: 108.8633 kg

DRUGS (1)
  1. ZICAM COLD REMEDY NASAL GEL [Suspect]
     Dosage: 1 WEEK 1 MONTH AGO-AFTER 1 WEEK

REACTIONS (3)
  - ANOSMIA [None]
  - HEADACHE [None]
  - NASAL DISCOMFORT [None]
